FAERS Safety Report 5897450-3 (Version None)
Quarter: 2008Q3

REPORT INFORMATION
  Report Type: 
  Country: None (occurrence: None)
  Receive Date: 20080915
  Receipt Date: 20071120
  Transmission Date: 20090109
  Serious: Yes (Other)
  Sender: FDA-Public Use
  Company Number: US-WYE-H01418307

PATIENT
  Age: 2 Year
  Sex: Male
  Weight: 11.8 kg

DRUGS (2)
  1. PHOSPHOLINE IODIDE [Suspect]
     Dosage: UNSPECIFIED ; UNSPECIFIED
     Dates: start: 20061001, end: 20061001
  2. PHOSPHOLINE IODIDE [Suspect]
     Dosage: UNSPECIFIED ; UNSPECIFIED
     Dates: start: 20070201, end: 20070201

REACTIONS (3)
  - DISCOMFORT [None]
  - EYE IRRITATION [None]
  - OCULAR HYPERAEMIA [None]
